FAERS Safety Report 8763896 (Version 1)
Quarter: 2012Q4

REPORT INFORMATION
  Report Type: 
  Country: DE (occurrence: DE)
  Receive Date: 20120829
  Receipt Date: 20120829
  Transmission Date: 20130627
  Serious: Yes (Other)
  Sender: FDA-Public Use
  Company Number: DE-ELI_LILLY_AND_COMPANY-DE201208007075

PATIENT
  Sex: Female

DRUGS (1)
  1. FORSTEO [Suspect]
     Indication: OSTEOPOROSIS
     Dosage: UNK UNK, qd
     Route: 058
     Dates: start: 20111022, end: 201208

REACTIONS (2)
  - Metastases to liver [Not Recovered/Not Resolved]
  - Colon neoplasm [Not Recovered/Not Resolved]
